FAERS Safety Report 15328671 (Version 2)
Quarter: 2018Q3

REPORT INFORMATION
  Report Type: Report from Study
  Country: FR (occurrence: FR)
  Receive Date: 20180829
  Receipt Date: 20180904
  Transmission Date: 20181010
  Serious: Yes (Death, Other)
  Sender: FDA-Public Use
  Company Number: FR-BRISTOL-MYERS SQUIBB COMPANY-BMS-2018-080574

PATIENT

DRUGS (1)
  1. NIVOLUMAB [Suspect]
     Active Substance: NIVOLUMAB
     Indication: HAEMATOLOGICAL MALIGNANCY
     Dosage: 1 MG/KG, Q2WK
     Route: 065

REACTIONS (2)
  - Autoimmune pancytopenia [Unknown]
  - Thrombotic stroke [Fatal]
